FAERS Safety Report 25559736 (Version 1)
Quarter: 2025Q3

REPORT INFORMATION
  Report Type: Spontaneous
  Country: US (occurrence: US)
  Receive Date: 20250715
  Receipt Date: 20250715
  Transmission Date: 20251021
  Serious: No
  Sender: NOVO NORDISK
  Company Number: US-NOVOPROD-1401392

PATIENT
  Sex: Female

DRUGS (1)
  1. OZEMPIC [Suspect]
     Active Substance: SEMAGLUTIDE
     Indication: Weight control

REACTIONS (6)
  - Weight fluctuation [Unknown]
  - Blood cholesterol abnormal [Unknown]
  - Injection site discharge [Unknown]
  - Administration site irritation [Unknown]
  - Injection site erythema [Unknown]
  - Product use in unapproved indication [Unknown]
